FAERS Safety Report 6557867-0 (Version None)
Quarter: 2010Q1

REPORT INFORMATION
  Report Type: 
  Country: None (occurrence: None)
  Receive Date: 20100129
  Receipt Date: 20090408
  Transmission Date: 20100710
  Serious: Yes (Hospitalization)
  Sender: FDA-Public Use
  Company Number: US-BAUSCH-2009BL001596

PATIENT
  Age: 18 Year
  Sex: Female

DRUGS (2)
  1. SULFACETAMIDE SODIUM [Suspect]
     Indication: CONJUNCTIVITIS
     Route: 047
     Dates: start: 20070416
  2. BACTRIM [Suspect]
     Indication: ACNE
     Route: 048
     Dates: start: 20070328

REACTIONS (1)
  - STEVENS-JOHNSON SYNDROME [None]
